FAERS Safety Report 5874482-2 (Version None)
Quarter: 2008Q3

REPORT INFORMATION
  Report Type: 
  Country: None (occurrence: None)
  Receive Date: 20080909
  Receipt Date: 20080826
  Transmission Date: 20090109
  Serious: Yes (Other)
  Sender: FDA-Public Use
  Company Number: PHHY2008JP18738

PATIENT
  Age: 58 Year
  Sex: Male

DRUGS (6)
  1. SANDIMMUNE [Suspect]
     Indication: BONE MARROW TRANSPLANT
     Dosage: UNK
  2. SANDIMMUNE [Suspect]
     Indication: GRAFT VERSUS HOST DISEASE
  3. METHOTREXATE [Suspect]
     Indication: BONE MARROW TRANSPLANT
     Route: 065
  4. METHOTREXATE [Suspect]
     Indication: GRAFT VERSUS HOST DISEASE
  5. FLUDARABINE PHOSPHATE [Suspect]
     Indication: BONE MARROW TRANSPLANT
     Route: 065
  6. BUSULFAN [Suspect]
     Indication: BONE MARROW TRANSPLANT
     Route: 065

REACTIONS (12)
  - BRONCHOALVEOLAR LAVAGE ABNORMAL [None]
  - CHEST X-RAY ABNORMAL [None]
  - COUGH [None]
  - DIARRHOEA [None]
  - EOSINOPHIL PERCENTAGE INCREASED [None]
  - EOSINOPHILIC PNEUMONIA ACUTE [None]
  - GRAFT VERSUS HOST DISEASE [None]
  - LUNG DISORDER [None]
  - OXYGEN SATURATION DECREASED [None]
  - PYREXIA [None]
  - RASH [None]
  - RESPIRATORY DISTRESS [None]
